FAERS Safety Report 18617989 (Version 1)
Quarter: 2020Q4

REPORT INFORMATION
  Report Type: Spontaneous
  Country: IT (occurrence: IT)
  Receive Date: 20201215
  Receipt Date: 20201215
  Transmission Date: 20210114
  Serious: Yes (Hospitalization, Other)
  Sender: FDA-Public Use
  Company Number: IT-MYLANLABS-2020M1100738

PATIENT
  Age: 51 Year
  Sex: Male

DRUGS (20)
  1. BUSULFAN. [Suspect]
     Active Substance: BUSULFAN
     Indication: ALLOGENIC STEM CELL TRANSPLANTATION
     Dosage: BUSULFAN 3.2MG/KG DAILY FROM DAYS -5 TO -3
     Route: 065
  2. CICLOSPORINE [Suspect]
     Active Substance: CYCLOSPORINE
     Indication: BONE MARROW CONDITIONING REGIMEN
  3. MELPHALAN. [Suspect]
     Active Substance: MELPHALAN
     Indication: BONE MARROW CONDITIONING REGIMEN
     Dosage: 25 MG/M2 DAYS -6 AND -5 (2ND)
  4. ANTILYMPHOCYTE IMMUNOGLOBULIN [Suspect]
     Active Substance: THYMOCYTE IMMUNE GLOBULIN NOS
     Dosage: 1.25 MG/KG DAY +7
     Route: 065
  5. ANTILYMPHOCYTE IMMUNOGLOBULIN [Suspect]
     Active Substance: THYMOCYTE IMMUNE GLOBULIN NOS
     Dosage: 2.5 MG/KG DAY -2 (2ND)
     Route: 065
  6. THIOTEPA. [Suspect]
     Active Substance: THIOTEPA
     Indication: ALLOGENIC STEM CELL TRANSPLANTATION
     Dosage: THIOTEPA 5MG/KG DAILY ON DAYS -7 AND -6
     Route: 065
  7. METHOTREXATE. [Suspect]
     Active Substance: METHOTREXATE
     Indication: ALLOGENIC STEM CELL TRANSPLANTATION
     Dosage: METHOTREXATE 15MG/M2 DAILY ON DAY +1 AND 10MG/M2 DAILY ON DAY +3 AND+6
     Route: 065
  8. CYCLOPHOSPHAMIDE. [Suspect]
     Active Substance: CYCLOPHOSPHAMIDE
     Indication: BONE MARROW CONDITIONING REGIMEN
     Dosage: UNK UNK, QD, 2 MG/KG DAY -3 (1ST)
     Route: 065
  9. ATG                                /00575401/ [Suspect]
     Active Substance: LAPINE T-LYMPHOCYTE IMMUNE GLOBULIN
     Indication: BONE MARROW CONDITIONING REGIMEN
     Dosage: ATG 3.75MG/KG DAILY ON DAYS -2 AND -1
     Route: 065
  10. ATG                                /00575401/ [Suspect]
     Active Substance: LAPINE T-LYMPHOCYTE IMMUNE GLOBULIN
     Dosage: ATG 2.5MG/KG DAILY ON DAY -2 AND 1.25MG/KG DAILY ON DAYS +7
     Route: 065
  11. METHOTREXATE. [Suspect]
     Active Substance: METHOTREXATE
     Indication: BONE MARROW CONDITIONING REGIMEN
     Dosage: METHOTREXATE 15MG/M2 DAILY ON DAY +1 AND 10MG/M2 DAILY ON DAY +3 AND+6
     Route: 065
  12. CICLOSPORINE [Suspect]
     Active Substance: CYCLOSPORINE
     Indication: ALLOGENIC STEM CELL TRANSPLANTATION
     Dosage: AT DOSE OF 2MG/KG ON DAY -3 AND ADJUSTED TO PLASMA TARGET LEVEL 200-300 UG/L.
     Route: 065
  13. CYCLOPHOSPHAMIDE. [Suspect]
     Active Substance: CYCLOPHOSPHAMIDE
     Indication: ALLOGENIC STEM CELL TRANSPLANTATION
     Dosage: CYCLOPHOSPHAMIDE 25MG/KG DAILY ON DAYS -6 AND -5
     Route: 065
  14. THIOTEPA. [Suspect]
     Active Substance: THIOTEPA
     Indication: BONE MARROW CONDITIONING REGIMEN
  15. ATG                                /00575401/ [Suspect]
     Active Substance: LAPINE T-LYMPHOCYTE IMMUNE GLOBULIN
     Indication: ALLOGENIC STEM CELL TRANSPLANTATION
     Dosage: ATG 2.5MG/KG DAILY ON DAY -2 AND 1.25MG/KG DAILY ON DAYS +7
     Route: 065
  16. ANTILYMPHOCYTE IMMUNOGLOBULIN [Suspect]
     Active Substance: THYMOCYTE IMMUNE GLOBULIN NOS
     Indication: BONE MARROW CONDITIONING REGIMEN
     Dosage: 3.75 MG/KG DAY -2 AND -1
     Route: 065
  17. FLUDARABINE [Suspect]
     Active Substance: FLUDARABINE PHOSPHATE
     Indication: ALLOGENIC STEM CELL TRANSPLANTATION
     Dosage: FLUDARABINE 50MG/M2 DAILY FROM DAYS -5 TO -3
     Route: 065
  18. MELPHALAN. [Suspect]
     Active Substance: MELPHALAN
     Indication: ALLOGENIC STEM CELL TRANSPLANTATION
     Dosage: MELPHALAN 25MG/M2 DAILY ON DAYS -4 AND -3
  19. FLUDARABINE [Suspect]
     Active Substance: FLUDARABINE PHOSPHATE
     Indication: BONE MARROW CONDITIONING REGIMEN
     Dosage: FLUDARABINE 25MG/M2 DAILY ON DAYS -6 TO -5
     Route: 065
  20. BUSULFAN. [Suspect]
     Active Substance: BUSULFAN
     Indication: BONE MARROW CONDITIONING REGIMEN

REACTIONS (9)
  - Acute graft versus host disease [Recovered/Resolved]
  - Cystitis viral [Recovered/Resolved]
  - Cytopenia [Recovered/Resolved]
  - Thrombocytopenia [Recovered/Resolved]
  - BK virus infection [Unknown]
  - Neutropenia [Recovered/Resolved]
  - Mucosal inflammation [Unknown]
  - Sepsis [Unknown]
  - Cytomegalovirus test positive [Recovered/Resolved]
